FAERS Safety Report 7545650-9 (Version None)
Quarter: 2011Q2

REPORT INFORMATION
  Report Type: 
  Country: None (occurrence: None)
  Receive Date: 20110614
  Receipt Date: 20110607
  Transmission Date: 20111010
  Serious: Yes (Death)
  Sender: FDA-Public Use
  Company Number: JP-BRISTOL-MYERS SQUIBB COMPANY-15822331

PATIENT

DRUGS (2)
  1. CARBOPLATIN [Suspect]
     Indication: NON-SMALL CELL LUNG CANCER
     Dosage: 1 DF : AUC 2,ON DAY 1,8 AND 15 WITHPUT ADMINISTRATION ON DAY 22
  2. PACLITAXEL [Suspect]
     Indication: NON-SMALL CELL LUNG CANCER

REACTIONS (1)
  - INTERSTITIAL LUNG DISEASE [None]
